FAERS Safety Report 15447958 (Version 7)
Quarter: 2018Q4

REPORT INFORMATION
  Report Type: Spontaneous
  Country: US (occurrence: US)
  Receive Date: 20180928
  Receipt Date: 20181203
  Transmission Date: 20190204
  Serious: Yes (Hospitalization, Other)
  Sender: FDA-Public Use
  Company Number: US-CELGENEUS-USA-20180908768

PATIENT
  Age: 73 Year
  Sex: Female

DRUGS (7)
  1. ZESTORETIC [Concomitant]
     Active Substance: HYDROCHLOROTHIAZIDE\LISINOPRIL
     Indication: HYPERTENSION
     Dosage: 12.5 MILLIGRAM
     Route: 065
     Dates: start: 20181005
  2. REVLIMID [Suspect]
     Active Substance: LENALIDOMIDE
     Indication: MARGINAL ZONE LYMPHOMA
     Dosage: 15MG -10MG
     Route: 048
     Dates: start: 201702
  3. REVLIMID [Suspect]
     Active Substance: LENALIDOMIDE
     Dosage: 10 MILLIGRAM
     Route: 048
     Dates: start: 20170627
  4. MAGNESIUM OXIDE. [Concomitant]
     Active Substance: MAGNESIUM OXIDE
     Indication: HYPOMAGNESAEMIA
     Route: 065
  5. REVLIMID [Suspect]
     Active Substance: LENALIDOMIDE
     Indication: PLASMA CELL MYELOMA
     Dosage: 20 MILLIGRAM
     Route: 048
     Dates: start: 20160720
  6. PRAVASTATIN. [Concomitant]
     Active Substance: PRAVASTATIN
     Indication: HYPERCHOLESTEROLAEMIA
     Dosage: 20 MILLIGRAM
     Route: 065
  7. REVLIMID [Suspect]
     Active Substance: LENALIDOMIDE
     Dosage: 10 MILLIGRAM
     Route: 048
     Dates: start: 201801, end: 20180912

REACTIONS (8)
  - White blood cell count decreased [Recovered/Resolved]
  - Fluid overload [Recovered/Resolved]
  - Neutropenia [Recovered/Resolved]
  - Dehydration [Recovered/Resolved]
  - Cardiac failure congestive [Recovered/Resolved]
  - Mental status changes [Recovered/Resolved]
  - Anaemia [Recovered/Resolved]
  - Diarrhoea [Recovered/Resolved]

NARRATIVE: CASE EVENT DATE: 20170224
